FAERS Safety Report 14256313 (Version 2)
Quarter: 2017Q4

REPORT INFORMATION
  Report Type: Spontaneous
  Country: US (occurrence: US)
  Receive Date: 20171206
  Receipt Date: 20171228
  Transmission Date: 20180321
  Serious: Yes (Other)
  Sender: FDA-Public Use
  Company Number: US-JNJFOC-20171206066

PATIENT
  Age: 72 Year
  Sex: Female

DRUGS (8)
  1. IMBRUVICA [Suspect]
     Active Substance: IBRUTINIB
     Indication: CHRONIC LYMPHOCYTIC LEUKAEMIA
     Route: 048
     Dates: start: 20171218
  2. ELIQUIS [Concomitant]
     Active Substance: APIXABAN
  3. OCUVITE [Concomitant]
     Active Substance: VITAMINS
  4. ASPIRIN. [Concomitant]
     Active Substance: ASPIRIN
  5. CENTRUM SILVER [Concomitant]
     Active Substance: MINERALS\VITAMINS
  6. IMBRUVICA [Suspect]
     Active Substance: IBRUTINIB
     Indication: CHRONIC LYMPHOCYTIC LEUKAEMIA
     Route: 048
     Dates: start: 20161031, end: 20171001
  7. VITAMIN C [Concomitant]
     Active Substance: ASCORBIC ACID
  8. IMBRUVICA [Suspect]
     Active Substance: IBRUTINIB
     Indication: CHRONIC LYMPHOCYTIC LEUKAEMIA
     Route: 048
     Dates: start: 2017, end: 2017

REACTIONS (2)
  - Coagulopathy [Unknown]
  - Hernia [Unknown]

NARRATIVE: CASE EVENT DATE: 20171004
